FAERS Safety Report 15935871 (Version 2)
Quarter: 2024Q2

REPORT INFORMATION
  Report Type: Report from Study
  Country: DE (occurrence: DE)
  Receive Date: 20190208
  Receipt Date: 20240406
  Transmission Date: 20240716
  Serious: Yes (Hospitalization)
  Sender: FDA-Public Use
  Company Number: None

PATIENT
  Age: 58 Year
  Sex: Female
  Weight: 88 kg

DRUGS (14)
  1. CAPECITABINE [Suspect]
     Active Substance: CAPECITABINE
     Indication: Breast cancer
     Dosage: 3000 MG FROM 21-MAR-2016 TO 15-MAY-2016
     Route: 048
     Dates: start: 20160704, end: 20160828
  2. BEVACIZUMAB [Suspect]
     Active Substance: BEVACIZUMAB
     Indication: Breast cancer
     Dosage: 1170 MG FROM 04-JUL-2016 TO 04-JUL-2016
     Route: 042
     Dates: start: 20160815, end: 20160815
  3. ENOXAPARIN SODIUM [Concomitant]
     Active Substance: ENOXAPARIN SODIUM
     Route: 058
     Dates: start: 20160902, end: 20160911
  4. DEXPANTHENOL [Concomitant]
     Active Substance: DEXPANTHENOL
     Indication: Epistaxis
     Route: 065
     Dates: start: 20160208, end: 20160214
  5. LOPERAMIDE HYDROCHLORIDE [Concomitant]
     Active Substance: LOPERAMIDE HYDROCHLORIDE
     Indication: Diarrhoea
     Dosage: DAILY DOSE: 2 MG MILLGRAM(S) EVERY AS NECESSARY
     Route: 048
     Dates: start: 20160208, end: 20160301
  6. DEXPANTHENOL [Concomitant]
     Active Substance: DEXPANTHENOL
     Indication: Mucosal inflammation
     Route: 048
     Dates: start: 20160208, end: 20160214
  7. XARELTO [Concomitant]
     Active Substance: RIVAROXABAN
     Route: 058
     Dates: start: 20160912
  8. LIDOCAINE HYDROCHLORIDE [Concomitant]
     Active Substance: LIDOCAINE HYDROCHLORIDE
     Indication: Mucosal inflammation
     Dosage: DAILY DOSE: 500 MG MILLGRAM(S) EVERY AS NECESSAR
     Route: 048
     Dates: start: 20160208, end: 20160214
  9. CORTISONE [Concomitant]
     Active Substance: CORTISONE
     Indication: Rash
     Dosage: DAILY DOSE: 25 MG MILLGRAM(S) EVERY AS NECESSARY
     Route: 058
     Dates: start: 20160208, end: 20160627
  10. CAPECITABINE [Suspect]
     Active Substance: CAPECITABINE
     Indication: Breast cancer
     Route: 048
     Dates: start: 20160118, end: 20160214
  11. CAPECITABINE [Suspect]
     Active Substance: CAPECITABINE
     Indication: Breast cancer
     Dosage: DAILY DOSE: 5000 MG MILLGRAM(S) EVERY 2 WEEKS
     Route: 048
     Dates: start: 20160118, end: 20160815
  12. CAPECITABINE [Suspect]
     Active Substance: CAPECITABINE
     Indication: Breast cancer
     Dosage: DAILY DOSE: 3000 MG MILLGRAM(S) EVERY 2 WEEKS
     Route: 048
     Dates: start: 20160321, end: 20160515
  13. BEVACIZUMAB [Suspect]
     Active Substance: BEVACIZUMAB
     Indication: Breast cancer
     Dosage: DAILY DOSE: 1320 MG MILLGRAM(S) EVERY 3 WEEKS
     Route: 042
     Dates: start: 20160118, end: 20160118
  14. BEVACIZUMAB [Suspect]
     Active Substance: BEVACIZUMAB
     Indication: Breast cancer
     Dosage: 1170 MG FROM 04-JUL-2016 TO 04-JUL-2016
     Route: 042
     Dates: start: 20160704, end: 20160704

REACTIONS (1)
  - Thrombosis [Recovered/Resolved]

NARRATIVE: CASE EVENT DATE: 20160902
